FAERS Safety Report 15022698 (Version 2)
Quarter: 2018Q3

REPORT INFORMATION
  Report Type: Spontaneous
  Country: FR (occurrence: FR)
  Receive Date: 20180618
  Receipt Date: 20180724
  Transmission Date: 20181010
  Serious: Yes (Other)
  Sender: FDA-Public Use
  Company Number: FR-PFIZER INC-2018240841

PATIENT
  Age: 31 Year
  Sex: Female

DRUGS (3)
  1. DOSTINEX [Suspect]
     Active Substance: CABERGOLINE
     Indication: HYPERPROLACTINAEMIA
  2. EFFERALGAN CODEINE [Concomitant]
     Active Substance: ACETAMINOPHEN\CODEINE PHOSPHATE
     Indication: MIGRAINE
     Dosage: AT EACH MIGRAINE, 2 OR 3 TIMES PER WEEK
  3. DOSTINEX [Suspect]
     Active Substance: CABERGOLINE
     Indication: PITUITARY TUMOUR BENIGN
     Dosage: 1 MG, WEEKLY
     Dates: start: 201002

REACTIONS (1)
  - Abortion spontaneous [Unknown]

NARRATIVE: CASE EVENT DATE: 201805
